FAERS Safety Report 7409862 (Version 3)
Quarter: 2012Q4

REPORT INFORMATION
  Report Type: Report from Study
  Country: DE (occurrence: DE)
  Receive Date: 20100604
  Receipt Date: 20121212
  Transmission Date: 20130627
  Serious: Yes (Disabling)
  Sender: FDA-Public Use
  Company Number: DE-ROCHE-706870

PATIENT
  Age: 71 Year
  Sex: Male
  Weight: 76 kg

DRUGS (4)
  1. TOCILIZUMAB [Suspect]
     Indication: RHEUMATOID ARTHRITIS
     Route: 042
  2. TOCILIZUMAB [Suspect]
     Dosage: LAST ADMINISTRATION OF 400 MG ON 16 FEB 2010
     Route: 042
  3. TOCILIZUMAB [Suspect]
     Dosage: GIVEN ON 23 MAR 2010
     Route: 042
  4. CORTICOSTEROID NOS [Suspect]
     Indication: RHEUMATOID ARTHRITIS
     Route: 048

REACTIONS (2)
  - Cellulitis [Recovered/Resolved with Sequelae]
  - Gangrene [Recovered/Resolved with Sequelae]
